FAERS Safety Report 7463296-8 (Version None)
Quarter: 2011Q2

REPORT INFORMATION
  Report Type: 
  Country: None (occurrence: None)
  Receive Date: 20110506
  Receipt Date: 20110503
  Transmission Date: 20111010
  Serious: Yes (Hospitalization)
  Sender: FDA-Public Use
  Company Number: A0920520A

PATIENT
  Age: 41 Year
  Sex: Female
  Weight: 68.2 kg

DRUGS (3)
  1. ALLI [Suspect]
     Indication: WEIGHT LOSS DIET
     Route: 048
     Dates: start: 20100901
  2. PROZAC [Concomitant]
     Dosage: 60MG PER DAY
     Route: 048
  3. MIRAPEX [Concomitant]
     Route: 048

REACTIONS (17)
  - PLEURAL EFFUSION [None]
  - ARTHRALGIA [None]
  - RASH ERYTHEMATOUS [None]
  - PYREXIA [None]
  - JOINT SWELLING [None]
  - DERMATITIS [None]
  - LIVER FUNCTION TEST ABNORMAL [None]
  - CHOLECYSTITIS [None]
  - DRUG HYPERSENSITIVITY [None]
  - ULTRASOUND ABDOMEN [None]
  - HEPATIC FAILURE [None]
  - ADVERSE DRUG REACTION [None]
  - HAEMOGLOBIN DECREASED [None]
  - LEUKOCYTOSIS [None]
  - ANAEMIA [None]
  - ABDOMINAL PAIN UPPER [None]
  - MAGNETIC RESONANCE CHOLANGIOPANCREATOGRAPHY [None]
